FAERS Safety Report 8937205 (Version 1)
Quarter: 2012Q4

REPORT INFORMATION
  Report Type: Spontaneous
  Country: US (occurrence: None)
  Receive Date: 20121121
  Receipt Date: 20121121
  Transmission Date: 20130627
  Serious: Yes (Hospitalization)
  Sender: FDA-Public Use
  Company Number: 141980

PATIENT
  Age: 58 Year
  Sex: Female
  Weight: 105 kg

DRUGS (1)
  1. LEUCOVORIN [Suspect]
     Route: 042

REACTIONS (2)
  - Subdural haemorrhage [None]
  - Road traffic accident [None]
